FAERS Safety Report 5731318-8 (Version None)
Quarter: 2008Q2

REPORT INFORMATION
  Report Type: 
  Country: None (occurrence: None)
  Receive Date: 20080508
  Receipt Date: 20080430
  Transmission Date: 20081010
  Serious: Yes (Disabling)
  Sender: FDA-Public Use
  Company Number: GB-RANBAXY-2008RR-14818

PATIENT

DRUGS (5)
  1. GABAPENTIN BASICS B 600MG FILMTABLETTEN [Suspect]
     Indication: EPILEPSY
     Route: 065
  2. CARBAMAZEPINE [Suspect]
     Indication: EPILEPSY
     Route: 048
  3. LAMOTRIGINE 100 MG TABLETS [Suspect]
     Indication: EPILEPSY
     Route: 048
  4. TOPIRABAX 100MG [Suspect]
     Route: 065
  5. PARACETAMOL [Concomitant]
     Route: 065

REACTIONS (4)
  - MACULAR DEGENERATION [None]
  - MACULOPATHY [None]
  - RETINAL DEPOSITS [None]
  - VISUAL ACUITY REDUCED [None]
